FAERS Safety Report 6363167-4 (Version None)
Quarter: 2009Q3

REPORT INFORMATION
  Report Type: 
  Country: None (occurrence: None)
  Receive Date: 20090919
  Receipt Date: 20090616
  Transmission Date: 20100115
  Serious: No
  Sender: FDA-Public Use
  Company Number: US-ABBOTT-09P-163-0580466-00

PATIENT
  Weight: 70.37 kg

DRUGS (1)
  1. HUMIRA [Suspect]
     Indication: ARTHRITIS
     Dates: start: 20080101

REACTIONS (1)
  - TOOTH INFECTION [None]
